FAERS Safety Report 10043310 (Version 1)
Quarter: 2014Q1

REPORT INFORMATION
  Report Type: Spontaneous
  Country: US (occurrence: None)
  Receive Date: 20140327
  Receipt Date: 20140327
  Transmission Date: 20141002
  Serious: Yes (Life-Threatening, Other)
  Sender: FDA-Public Use
  Company Number: None

PATIENT
  Age: 14 Year
  Sex: Female
  Weight: 83.01 kg

DRUGS (1)
  1. JOLESSA [Suspect]
     Indication: MENSTRUATION IRREGULAR
     Dosage: 1PILL
     Route: 048
     Dates: start: 20140223, end: 20140312

REACTIONS (4)
  - Costochondritis [None]
  - Hypoaesthesia [None]
  - Fatigue [None]
  - Suicidal ideation [None]
